FAERS Safety Report 11792803 (Version 7)
Quarter: 2018Q2

REPORT INFORMATION
  Report Type: Spontaneous
  Country: US (occurrence: US)
  Receive Date: 20151202
  Receipt Date: 20180508
  Transmission Date: 20180711
  Serious: Yes (Hospitalization, Other)
  Sender: FDA-Public Use
  Company Number: US-DSJP-DSU-2015-125762

PATIENT

DRUGS (2)
  1. BENICAR HCT [Suspect]
     Active Substance: HYDROCHLOROTHIAZIDE\OLMESARTAN MEDOXOMIL
     Indication: HYPERTENSION
     Dosage: 40/25 MG, UNK
     Dates: start: 20040713, end: 2005
  2. BENICAR [Suspect]
     Active Substance: OLMESARTAN MEDOXOMIL
     Indication: PRODUCT USED FOR UNKNOWN INDICATION
     Dosage: 40 MG, UNK
     Dates: start: 20040713

REACTIONS (15)
  - Hospitalisation [Unknown]
  - Acquired oesophageal web [Unknown]
  - Hiatus hernia [Unknown]
  - Cholelithiasis [Unknown]
  - Pancreatitis [Not Recovered/Not Resolved]
  - Gastrooesophageal reflux disease [Not Recovered/Not Resolved]
  - Diabetic gastroparesis [Not Recovered/Not Resolved]
  - Large intestine polyp [Unknown]
  - Crohn^s disease [Not Recovered/Not Resolved]
  - Gastrointestinal surgery [Unknown]
  - Gastrointestinal bacterial overgrowth [Unknown]
  - Haemorrhoids [Unknown]
  - Intestinal obstruction [Unknown]
  - Malabsorption [Not Recovered/Not Resolved]
  - Diverticulum [Unknown]

NARRATIVE: CASE EVENT DATE: 200606
